FAERS Safety Report 24181298 (Version 1)
Quarter: 2024Q3

REPORT INFORMATION
  Report Type: Report from Study
  Country: ES (occurrence: ES)
  Receive Date: 20240807
  Receipt Date: 20240807
  Transmission Date: 20241016
  Serious: Yes (Death)
  Sender: GLAXOSMITHKLINE
  Company Number: ES-GLAXOSMITHKLINE-ES2024GSK097332

PATIENT

DRUGS (1)
  1. MOMELOTINIB [Suspect]
     Active Substance: MOMELOTINIB
     Indication: Primary myelofibrosis
     Dosage: 200 MG
     Route: 048
     Dates: start: 20240524

REACTIONS (1)
  - Gastroenteritis [Fatal]
